FAERS Safety Report 4452038-6 (Version None)
Quarter: 2004Q3

REPORT INFORMATION
  Report Type: 
  Country: None (occurrence: None)
  Receive Date: 20040917
  Receipt Date: 20040914
  Transmission Date: 20050211
  Serious: Yes (Other)
  Sender: FDA-Public Use
  Company Number: PHNR2004AU01420

PATIENT
  Age: 64 Year
  Sex: Female

DRUGS (6)
  1. ZOMETA [Suspect]
     Indication: OSTEOPOROSIS
     Dosage: 4 MG, ONCE/SINGLE
     Dates: start: 20040401, end: 20040401
  2. PREDNISONE [Concomitant]
  3. ENBREL [Concomitant]
  4. DIGOXIN [Concomitant]
  5. ESTRADERM [Concomitant]
  6. MINOCYCLINE HCL [Concomitant]

REACTIONS (8)
  - ARTHRALGIA [None]
  - C-REACTIVE PROTEIN INCREASED [None]
  - CHILLS [None]
  - CONDITION AGGRAVATED [None]
  - FATIGUE [None]
  - INFLUENZA LIKE ILLNESS [None]
  - RHEUMATOID ARTHRITIS [None]
  - SKIN DESQUAMATION [None]
